FAERS Safety Report 15315923 (Version 1)
Quarter: 2018Q3

REPORT INFORMATION
  Report Type: Report from Study
  Country: DE (occurrence: DE)
  Receive Date: 20180824
  Receipt Date: 20180824
  Transmission Date: 20181010
  Serious: Yes (Hospitalization)
  Sender: FDA-Public Use
  Company Number: DE-JNJFOC-20180828372

PATIENT
  Age: 83 Year
  Sex: Female

DRUGS (1)
  1. XARELTO [Suspect]
     Active Substance: RIVAROXABAN
     Indication: PRODUCT USED FOR UNKNOWN INDICATION
     Route: 048

REACTIONS (5)
  - Hypertensive crisis [Unknown]
  - Thalamus haemorrhage [Unknown]
  - Hydrocephalus [Unknown]
  - Cerebral ventricular rupture [Unknown]
  - Hypotension [Unknown]

NARRATIVE: CASE EVENT DATE: 20180814
